FAERS Safety Report 24659336 (Version 3)
Quarter: 2024Q4

REPORT INFORMATION
  Report Type: Spontaneous
  Country: US (occurrence: US)
  Receive Date: 20241125
  Receipt Date: 20241227
  Transmission Date: 20250115
  Serious: No
  Sender: PFIZER
  Company Number: US-PFIZER INC-202400302331

PATIENT
  Age: 18 Year
  Sex: Male

DRUGS (2)
  1. GENOTROPIN [Suspect]
     Active Substance: SOMATROPIN
     Indication: Growth hormone deficiency
     Dosage: 2 MG, ALTERNATE DAY [ALTERNATES 2MG AND 2.2MG EVERY OTHER DAY]
  2. GENOTROPIN [Suspect]
     Active Substance: SOMATROPIN
     Dosage: 2.2 MG, ALTERNATE DAY [ALTERNATES 2MG AND 2.2MG EVERY OTHER DAY]

REACTIONS (2)
  - Device use issue [Unknown]
  - Device breakage [Unknown]
